FAERS Safety Report 5032368-X (Version None)
Quarter: 2006Q2

REPORT INFORMATION
  Report Type: 
  Country: None (occurrence: None)
  Receive Date: 20060621
  Receipt Date: 20060621
  Transmission Date: 20061013
  Serious: Yes (Death)
  Sender: FDA-Public Use
  Company Number: None

PATIENT
  Sex: Male
  Weight: 56.7 kg

DRUGS (11)
  1. FLUDARABINE [Suspect]
     Indication: STEM CELL TRANSPLANT
     Dosage: 48 MG DAILY IV DRIP
     Route: 041
     Dates: start: 20060405, end: 20060409
  2. CAMPATH [Suspect]
     Indication: STEM CELL TRANSPLANT
     Dosage: 20 MG DAILY IV DRIP
     Route: 041
     Dates: start: 20060405, end: 20060409
  3. MELPHALAN [Suspect]
     Dosage: 224 IV DRIP
     Route: 041
     Dates: start: 20060410, end: 20060410
  4. METHYLPREDNISOLONE [Concomitant]
  5. PROGRAF [Concomitant]
  6. ACTIGALL [Concomitant]
  7. SPIRONOLACTONE [Concomitant]
  8. VANCOMYCIN [Concomitant]
  9. GANCICLOVIR [Concomitant]
  10. VORICONAZOLE [Concomitant]
  11. CEFTAZIDINE [Concomitant]

REACTIONS (8)
  - ASCITES [None]
  - DIARRHOEA [None]
  - GENERAL PHYSICAL HEALTH DETERIORATION [None]
  - GRAFT VERSUS HOST DISEASE [None]
  - HYPOTENSION [None]
  - NAUSEA [None]
  - PYREXIA [None]
  - VOMITING [None]
